FAERS Safety Report 6745053-0 (Version None)
Quarter: 2010Q2

REPORT INFORMATION
  Report Type: 
  Country: None (occurrence: None)
  Receive Date: 20100527
  Receipt Date: 20100520
  Transmission Date: 20101027
  Serious: Yes (Other)
  Sender: FDA-Public Use
  Company Number: US-GILEAD-2009-0019688

PATIENT
  Sex: Female
  Weight: 83.082 kg

DRUGS (9)
  1. LETAIRIS [Suspect]
     Indication: COR PULMONALE CHRONIC
     Route: 048
     Dates: start: 20081218, end: 20081230
  2. REMODULIN [Concomitant]
  3. VIAGRA [Concomitant]
  4. METOLAZONE [Concomitant]
  5. SPIRONOLACTONE [Concomitant]
  6. METOPROLOL [Concomitant]
  7. EVOXAC [Concomitant]
  8. AZATHIOPRINE SODIUM [Concomitant]
  9. NEURONTIN [Concomitant]

REACTIONS (2)
  - FLUID RETENTION [None]
  - RENAL FAILURE [None]
